FAERS Safety Report 10455413 (Version 1)
Quarter: 2014Q3

REPORT INFORMATION
  Report Type: Spontaneous
  Country: US (occurrence: None)
  Receive Date: 20140915
  Receipt Date: 20140915
  Transmission Date: 20150326
  Serious: Yes (Other)
  Sender: FDA-Public Use
  Company Number: None

PATIENT
  Age: 31 Year
  Sex: Male
  Weight: 127.01 kg

DRUGS (1)
  1. AMBIEN [Suspect]
     Active Substance: ZOLPIDEM TARTRATE
     Indication: INITIAL INSOMNIA
     Dosage: 1 AND 1/2 TABLETS AT BETIME TAKEN BY MOUTH
     Route: 048

REACTIONS (8)
  - Thinking abnormal [None]
  - Legal problem [None]
  - Impaired work ability [None]
  - Drug dependence [None]
  - Mental disorder [None]
  - Incorrect dose administered [None]
  - Drug tolerance increased [None]
  - Feeling abnormal [None]

NARRATIVE: CASE EVENT DATE: 20140709
